FAERS Safety Report 15837219 (Version 1)
Quarter: 2019Q1

REPORT INFORMATION
  Report Type: Spontaneous
  Country: US (occurrence: US)
  Receive Date: 20190115
  Receipt Date: 20190115
  Transmission Date: 20190417
  Serious: No
  Sender: FDA-Public Use
  Company Number: None

PATIENT
  Sex: Female

DRUGS (1)
  1. REBIF [Suspect]
     Active Substance: INTERFERON BETA-1A
     Dosage: STRENGTH 22MCG/.5 ML
     Route: 058

REACTIONS (3)
  - Injection site reaction [None]
  - Influenza like illness [None]
  - White blood cell count decreased [None]
